FAERS Safety Report 9207312 (Version 1)
Quarter: 2013Q1

REPORT INFORMATION
  Report Type: Spontaneous
  Country: US (occurrence: None)
  Receive Date: 20120807
  Receipt Date: 20120807
  Transmission Date: 20140127
  Serious: Yes (Other)
  Sender: FDA-Public Use
  Company Number: 2012P1004031

PATIENT
  Age: 50 Year
  Sex: Female

DRUGS (4)
  1. CIPROFLOXACIN [Suspect]
     Indication: SINUSITIS
     Route: 048
     Dates: start: 20111205, end: 20111210
  2. CIPROFLOXACIN [Suspect]
     Indication: URINARY TRACT INFECTION
     Route: 048
     Dates: start: 20111205, end: 20111210
  3. METFORMIN [Concomitant]
  4. GLYBURIDE [Concomitant]

REACTIONS (4)
  - Dizziness [None]
  - Tendon rupture [None]
  - Diarrhoea [None]
  - Cold sweat [None]
